FAERS Safety Report 5645755-3 (Version None)
Quarter: 2008Q1

REPORT INFORMATION
  Report Type: 
  Country: None (occurrence: None)
  Receive Date: 20080229
  Receipt Date: 20080221
  Transmission Date: 20080703
  Serious: Yes (Other)
  Sender: FDA-Public Use
  Company Number: US-ABBOTT-08P-163-0439447-00

PATIENT
  Sex: Male
  Weight: 108.96 kg

DRUGS (3)
  1. HUMIRA [Suspect]
     Indication: RHEUMATOID ARTHRITIS
     Route: 058
     Dates: start: 20050624, end: 20060501
  2. METHOTREXATE [Suspect]
     Indication: RHEUMATOID ARTHRITIS
     Dates: end: 20060501
  3. PREDNISONE TAB [Suspect]
     Indication: RHEUMATOID ARTHRITIS
     Route: 048

REACTIONS (5)
  - CHILLS [None]
  - HERPES ZOSTER [None]
  - HODGKIN'S DISEASE RECURRENT [None]
  - PYREXIA [None]
  - STAPHYLOCOCCAL INFECTION [None]
